FAERS Safety Report 5363055-6 (Version None)
Quarter: 2007Q2

REPORT INFORMATION
  Report Type: 
  Country: None (occurrence: None)
  Receive Date: 20070615
  Receipt Date: 20070531
  Transmission Date: 20071010
  Serious: Yes (Hospitalization)
  Sender: FDA-Public Use
  Company Number: 2007EU001155

PATIENT
  Age: 50 Year
  Sex: Male
  Weight: 83 kg

DRUGS (2)
  1. TACROLIMUS [Suspect]
     Indication: LIVER TRANSPLANT
     Dosage: 17 MG, D, ORAL
     Route: 048
  2. SIMULECT [Concomitant]

REACTIONS (3)
  - RETINAL VEIN OCCLUSION [None]
  - RETINITIS [None]
  - VENOUS THROMBOSIS [None]
